FAERS Safety Report 12924453 (Version 1)
Quarter: 2016Q4

REPORT INFORMATION
  Report Type: Spontaneous
  Country: IT (occurrence: IT)
  Receive Date: 20161109
  Receipt Date: 20161109
  Transmission Date: 20170207
  Serious: Yes (Other)
  Sender: FDA-Public Use
  Company Number: IT-AUROBINDO-AUR-APL-2016-13654

PATIENT
  Age: 63 Year
  Sex: Female

DRUGS (3)
  1. OKI [Suspect]
     Active Substance: KETOPROFEN LYSINE
     Indication: TOOTHACHE
     Dosage: 1 DF, UNK
     Route: 048
     Dates: start: 20161007, end: 20161007
  2. AMOXICILLIN. [Suspect]
     Active Substance: AMOXICILLIN
     Indication: TOOTH ABSCESS
     Dosage: 1 DF, UNK
     Route: 048
     Dates: start: 20161007, end: 20161007
  3. NEBIVOLOL. [Concomitant]
     Active Substance: NEBIVOLOL
     Indication: PRODUCT USED FOR UNKNOWN INDICATION
     Dosage: 5 MG, UNK
     Route: 048

REACTIONS (1)
  - Face oedema [Recovering/Resolving]

NARRATIVE: CASE EVENT DATE: 20161007
